FAERS Safety Report 8293696-8 (Version None)
Quarter: 2012Q2

REPORT INFORMATION
  Report Type: 
  Country: None (occurrence: None)
  Receive Date: 20120418
  Receipt Date: 20120410
  Transmission Date: 20120825
  Serious: Yes (Life-Threatening)
  Sender: FDA-Public Use
  Company Number: DK-GE HEALTHCARE MEDICAL DIAGNOSTICS-VISP-NO-1201S-0020

PATIENT
  Sex: Female
  Weight: 60 kg

DRUGS (1)
  1. VISIPAQUE [Suspect]
     Indication: PANCREATIC CARCINOMA
     Route: 042
     Dates: start: 20111230, end: 20111230

REACTIONS (1)
  - ANAPHYLACTOID SHOCK [None]
